FAERS Safety Report 21107052 (Version 1)
Quarter: 2022Q3

REPORT INFORMATION
  Report Type: Spontaneous
  Country: US (occurrence: US)
  Receive Date: 20220720
  Receipt Date: 20220720
  Transmission Date: 20221027
  Serious: No
  Sender: FDA-Public Use
  Company Number: US-JAZZ-2022-US-015900

PATIENT
  Age: 34 Year
  Sex: Female

DRUGS (6)
  1. EPIDIOLEX [Suspect]
     Active Substance: CANNABIDIOL
     Indication: Seizure
     Dosage: 5.75 MILLILITER, BID
     Route: 048
     Dates: start: 20200603
  2. DIVALPROEX SODIUM [Concomitant]
     Active Substance: DIVALPROEX SODIUM
  3. CLONAZEPAM [Concomitant]
     Active Substance: CLONAZEPAM
  4. FELBAMATE [Concomitant]
     Active Substance: FELBAMATE
  5. CLOBAZAM [Concomitant]
     Active Substance: CLOBAZAM
  6. XYZAL [Concomitant]
     Active Substance: LEVOCETIRIZINE DIHYDROCHLORIDE

REACTIONS (1)
  - Atonic seizures [Recovered/Resolved]

NARRATIVE: CASE EVENT DATE: 20220502
